FAERS Safety Report 9880298 (Version 2)
Quarter: 2014Q1

REPORT INFORMATION
  Report Type: Spontaneous
  Country: FR (occurrence: FR)
  Receive Date: 20140207
  Receipt Date: 20140228
  Transmission Date: 20141002
  Serious: Yes (Hospitalization, Disabling)
  Sender: FDA-Public Use
  Company Number: FR-ROCHE-1344078

PATIENT
  Age: 42 Year
  Sex: Male
  Weight: 79 kg

DRUGS (6)
  1. MABTHERA [Suspect]
     Indication: LYMPHOMA
     Route: 042
     Dates: start: 200706, end: 200711
  2. MABTHERA [Suspect]
     Indication: NON-HODGKIN^S LYMPHOMA
     Dosage: INJECTION SOLUTION FORM
     Route: 042
     Dates: start: 20070801, end: 20071116
  3. CYCLOPHOSPHAMIDE [Concomitant]
     Indication: LYMPHOMA
     Route: 065
     Dates: start: 200706, end: 200711
  4. DOXORUBICIN [Concomitant]
     Indication: LYMPHOMA
     Route: 065
     Dates: start: 200706, end: 200711
  5. VINCRISTINE [Concomitant]
     Indication: LYMPHOMA
     Route: 065
     Dates: start: 200706, end: 200711
  6. PREDNISONE [Concomitant]
     Indication: LYMPHOMA
     Route: 065
     Dates: start: 200706, end: 200711

REACTIONS (3)
  - Meningitis [Recovered/Resolved]
  - Peripheral motor neuropathy [Recovering/Resolving]
  - Lymphoma [Unknown]
